FAERS Safety Report 9867176 (Version 1)
Quarter: 2014Q1

REPORT INFORMATION
  Report Type: Spontaneous
  Country: US (occurrence: None)
  Receive Date: 20140131
  Receipt Date: 20140131
  Transmission Date: 20141002
  Serious: Yes (Death, Hospitalization)
  Sender: FDA-Public Use
  Company Number: 2014AP000737

PATIENT
  Age: 58 Year
  Sex: Male

DRUGS (6)
  1. SILDENAFIL [Suspect]
     Dosage: ; PO
     Route: 048
  2. OMEPRAZOLE DELAYED-RELEASE CAPSULES, USP [Suspect]
     Dosage: ; PO
     Route: 048
  3. TRANDOLAPRIL/VERAPAMIL [Suspect]
     Dosage: ; PO
     Route: 048
  4. FENOFIBRATE [Suspect]
     Dosage: ; PO
     Route: 048
  5. ALPRAZOLAM [Suspect]
     Dosage: ; PO
     Route: 048
  6. NAPROXEN [Suspect]
     Dosage: ; PO
     Route: 048

REACTIONS (2)
  - Completed suicide [None]
  - Exposure via ingestion [None]
